FAERS Safety Report 8239888-5 (Version None)
Quarter: 2012Q1

REPORT INFORMATION
  Report Type: 
  Country: None (occurrence: None)
  Receive Date: 20120328
  Receipt Date: 20120326
  Transmission Date: 20120608
  Serious: Yes (Hospitalization)
  Sender: FDA-Public Use
  Company Number: PHHY2012NL026191

PATIENT
  Sex: Male

DRUGS (3)
  1. ZOMETA [Suspect]
     Indication: PROSTATE CANCER METASTATIC
     Dosage: 4 MG (PERIPHERAL INFUSION AT 320ML/H) ONCE PER 28 DAYS,
     Route: 042
     Dates: start: 20120229
  2. ESOMEPRAZOLE [Concomitant]
     Dosage: 20 MG, QD
  3. NAPROXEN [Concomitant]
     Dosage: 500 MG, QD

REACTIONS (2)
  - PARAPLEGIA [None]
  - MUSCULAR WEAKNESS [None]
